FAERS Safety Report 9597106 (Version 1)
Quarter: 2013Q4

REPORT INFORMATION
  Report Type: Spontaneous
  Country: IT (occurrence: IT)
  Receive Date: 20131004
  Receipt Date: 20131004
  Transmission Date: 20140711
  Serious: Yes (Hospitalization)
  Sender: FDA-Public Use
  Company Number: IT-ACTAVIS-2013-17795

PATIENT
  Age: 25 Year
  Sex: Female

DRUGS (1)
  1. PARACETAMOL (UNKNOWN) [Suspect]
     Indication: INTENTIONAL SELF-INJURY
     Dosage: 18 DF, SINGLE
     Route: 048
     Dates: start: 20130630, end: 20130630

REACTIONS (3)
  - Sopor [Unknown]
  - Toxicity to various agents [Unknown]
  - Drug abuse [Unknown]
